FAERS Safety Report 8556512-2 (Version None)
Quarter: 2012Q3

REPORT INFORMATION
  Report Type: 
  Country: None (occurrence: None)
  Receive Date: 20120801
  Receipt Date: 20120727
  Transmission Date: 20120928
  Serious: Yes (Life-Threatening, Hospitalization, Other)
  Sender: FDA-Public Use
  Company Number: PHHY2012DK049867

PATIENT
  Sex: Female
  Weight: 70 kg

DRUGS (2)
  1. REBIF [Suspect]
     Dosage: UNK UKN, UNK
     Dates: start: 20120510
  2. GILENYA [Suspect]
     Indication: MULTIPLE SCLEROSIS
     Dosage: 0.5 MG, QD
     Dates: start: 20120309, end: 20120510

REACTIONS (11)
  - MULTIPLE SCLEROSIS RELAPSE [None]
  - QUADRIPLEGIA [None]
  - APHASIA [None]
  - ABDOMINAL ABSCESS [None]
  - ACUTE DISSEMINATED ENCEPHALOMYELITIS [None]
  - APPENDICITIS PERFORATED [None]
  - CENTRAL NERVOUS SYSTEM LESION [None]
  - COGNITIVE DISORDER [None]
  - HEMIPARESIS [None]
  - PELVIC FLUID COLLECTION [None]
  - PERITONITIS [None]
